FAERS Safety Report 10276803 (Version 2)
Quarter: 2014Q3

REPORT INFORMATION
  Report Type: Spontaneous
  Country: US (occurrence: None)
  Receive Date: 20140701
  Receipt Date: 20140715
  Transmission Date: 20150326
  Serious: Yes (Hospitalization)
  Sender: FDA-Public Use
  Company Number: 2014NUEUSA00347

PATIENT
  Age: 27 Year
  Sex: Male

DRUGS (5)
  1. NUEDEXTA [Suspect]
     Active Substance: DEXTROMETHORPHAN HYDROBROMIDE\QUINIDINE SULFATE
     Indication: AFFECT LABILITY
     Dosage: 2 CAP, QD
     Dates: start: 20140218
  2. NUEDEXTA [Suspect]
     Active Substance: DEXTROMETHORPHAN HYDROBROMIDE\QUINIDINE SULFATE
     Indication: MULTIPLE SCLEROSIS
     Dosage: 2 CAP, QD
     Dates: start: 20140218
  3. OXYCODONE /ACETAMINOPHEN (OXYCODONE HYDROCHLORIDE, PARACETAMOL) [Concomitant]
  4. MEGESTROL ACETATE (MEGESTROL ACETATE) [Concomitant]
  5. TECFIDERA (DIMETHYL FUMARATE) [Concomitant]

REACTIONS (5)
  - Visual impairment [None]
  - Multiple sclerosis relapse [None]
  - Optic neuritis [None]
  - Treatment noncompliance [None]
  - Refusal of treatment by patient [None]

NARRATIVE: CASE EVENT DATE: 201406
